FAERS Safety Report 5154936-7 (Version None)
Quarter: 2006Q4

REPORT INFORMATION
  Report Type: 
  Country: None (occurrence: None)
  Receive Date: 20061121
  Receipt Date: 20061006
  Transmission Date: 20070319
  Serious: Yes (Other)
  Sender: FDA-Public Use
  Company Number: PHFR2006GB03030

PATIENT
  Age: 26 Year
  Sex: Male

DRUGS (4)
  1. PERINDOPRIL ERBUMINE [Concomitant]
     Dosage: 2MG / DAY
     Route: 065
  2. HYOSCINE HBR HYT [Concomitant]
     Dosage: 300UG / DAY
     Route: 065
  3. FLUOXETINE [Concomitant]
     Dosage: 20MG / DAY
     Route: 065
  4. CLOZARIL [Suspect]
     Indication: SCHIZOPHRENIA
     Dosage: 175MG AND 375MG
     Route: 048
     Dates: start: 20040426

REACTIONS (5)
  - BLOOD TRIGLYCERIDES INCREASED [None]
  - ELECTROCARDIOGRAM QT CORRECTED INTERVAL PROLONGED [None]
  - HYPERCHOLESTEROLAEMIA [None]
  - HYPERGLYCAEMIA [None]
  - TACHYCARDIA [None]
